FAERS Safety Report 8128835-2 (Version None)
Quarter: 2012Q1

REPORT INFORMATION
  Report Type: 
  Country: None (occurrence: None)
  Receive Date: 20120210
  Receipt Date: 20110324
  Transmission Date: 20120608
  Serious: No
  Sender: FDA-Public Use
  Company Number: US-BRISTOL-MYERS SQUIBB COMPANY-15632219

PATIENT
  Sex: Female

DRUGS (2)
  1. METHOTREXATE [Concomitant]
  2. ORENCIA [Suspect]
     Dosage: 1DF= 3 VIALS,SUPPOSE TO GET 2 VIALS OF ORENCIA BUT THE PHYSICIAN GAVE HER 3 VIALS IN ERROR^.

REACTIONS (1)
  - MEDICATION ERROR [None]
